FAERS Safety Report 25898806 (Version 4)
Quarter: 2025Q4

REPORT INFORMATION
  Report Type: Spontaneous
  Country: JP (occurrence: JP)
  Receive Date: 20251009
  Receipt Date: 20251127
  Transmission Date: 20260117
  Serious: Yes (Other)
  Sender: BRISTOL-MYERS SQUIBB COMPANY
  Company Number: JP-BRISTOL-MYERS SQUIBB COMPANY-2025-135905

PATIENT
  Age: 5 Decade
  Sex: Male

DRUGS (2)
  1. YERVOY [Suspect]
     Active Substance: IPILIMUMAB
     Indication: Malignant melanoma
     Route: 041
  2. OPDIVO [Suspect]
     Active Substance: NIVOLUMAB
     Indication: Malignant melanoma

REACTIONS (10)
  - Renal infarct [Recovering/Resolving]
  - Lambl^s excrescences [Recovering/Resolving]
  - Immune-mediated arthritis [Unknown]
  - Gastrointestinal oedema [Unknown]
  - Seronegative arthritis [Unknown]
  - Fluid retention [Unknown]
  - Visceral oedema [Unknown]
  - Neuropathy peripheral [Unknown]
  - Immune-mediated enterocolitis [Unknown]
  - Generalised oedema [Unknown]
